FAERS Safety Report 5449766-2 (Version None)
Quarter: 2007Q3

REPORT INFORMATION
  Report Type: 
  Country: None (occurrence: None)
  Receive Date: 20070910
  Receipt Date: 20070910
  Transmission Date: 20080115
  Serious: No
  Sender: FDA-Public Use
  Company Number: None

PATIENT
  Age: 49 Year
  Sex: Male

DRUGS (1)
  1. ZOLEDRONIC [Suspect]
     Indication: PROSTATE CANCER
     Dosage: 4GM ONCE IV
     Route: 042
     Dates: start: 20050331, end: 20070406

REACTIONS (1)
  - OSTEONECROSIS [None]
